FAERS Safety Report 4526580-3 (Version None)
Quarter: 2004Q4

REPORT INFORMATION
  Report Type: 
  Country: None (occurrence: None)
  Receive Date: 20041214
  Receipt Date: 20041203
  Transmission Date: 20050328
  Serious: Yes (Other)
  Sender: FDA-Public Use
  Company Number: US-JNJFOC-20041201664

PATIENT
  Sex: Female

DRUGS (1)
  1. RISPERDAL [Suspect]
     Indication: DEPRESSION
     Route: 049

REACTIONS (3)
  - CEREBROVASCULAR ACCIDENT [None]
  - CRYING [None]
  - UNRESPONSIVE TO VERBAL STIMULI [None]
